FAERS Safety Report 26086954 (Version 1)
Quarter: 2025Q4

REPORT INFORMATION
  Report Type: Spontaneous
  Country: US (occurrence: US)
  Receive Date: 20251125
  Receipt Date: 20251125
  Transmission Date: 20260117
  Serious: Yes (Other)
  Sender: RANBAXY
  Company Number: US-SUN PHARMACEUTICAL INDUSTRIES LTD-2025R1-537520

PATIENT
  Age: 35 Year
  Sex: Female

DRUGS (3)
  1. ASPIRIN [Suspect]
     Active Substance: ASPIRIN
     Indication: Antithrombin III deficiency
     Dosage: UNK
     Route: 065
  2. PLAVIX [Suspect]
     Active Substance: CLOPIDOGREL BISULFATE
     Indication: Antithrombin III deficiency
     Dosage: UNK
     Route: 065
  3. LOVENOX [Concomitant]
     Active Substance: ENOXAPARIN SODIUM
     Indication: Antithrombin III deficiency
     Dosage: UNK
     Route: 065

REACTIONS (1)
  - Cerebrovascular accident [Unknown]
